FAERS Safety Report 7053835-3 (Version None)
Quarter: 2010Q4

REPORT INFORMATION
  Report Type: 
  Country: None (occurrence: None)
  Receive Date: 20101020
  Receipt Date: 20101007
  Transmission Date: 20110411
  Serious: Yes (Other)
  Sender: FDA-Public Use
  Company Number: PHHY2010HR67082

PATIENT
  Age: 68 Year
  Sex: Male

DRUGS (6)
  1. LESCOL XL [Suspect]
     Dosage: 84.24 MG
     Route: 048
     Dates: start: 20090101
  2. EZETROL [Concomitant]
  3. DIOVAN [Concomitant]
  4. TERTENSIF [Concomitant]
  5. LACIPIL [Concomitant]
  6. TAMOSIN [Concomitant]

REACTIONS (2)
  - GASTROINTESTINAL DISORDER [None]
  - HEPATIC ENZYME INCREASED [None]
